FAERS Safety Report 8708427 (Version 2)
Quarter: 2017Q2

REPORT INFORMATION
  Report Type: Spontaneous
  Country: US (occurrence: US)
  Receive Date: 20120806
  Receipt Date: 20170427
  Transmission Date: 20170830
  Serious: Yes (Hospitalization, Other)
  Sender: FDA-Public Use
  Company Number: US-PFIZER INC-2012185578

PATIENT
  Age: 10 Year
  Sex: Female

DRUGS (1)
  1. PHENYTOIN. [Suspect]
     Active Substance: PHENYTOIN
     Indication: SEIZURE
     Dosage: 200 MG, DAILY

REACTIONS (4)
  - Hepatitis [Recovered/Resolved]
  - Skin depigmentation [Unknown]
  - Toxic epidermal necrolysis [Unknown]
  - Tubulointerstitial nephritis [Recovered/Resolved]
